FAERS Safety Report 6911780-5 (Version None)
Quarter: 2010Q3

REPORT INFORMATION
  Report Type: 
  Country: None (occurrence: None)
  Receive Date: 20100806
  Receipt Date: 20070811
  Transmission Date: 20110219
  Serious: No
  Sender: FDA-Public Use
  Company Number: US-PFIZER INC-2007021496

PATIENT
  Sex: Female
  Weight: 48.99 kg

DRUGS (1)
  1. DETROL LA [Suspect]
     Route: 048
     Dates: start: 20060706, end: 20060708

REACTIONS (1)
  - FEELING ABNORMAL [None]
